FAERS Safety Report 4330791-X (Version None)
Quarter: 2004Q1

REPORT INFORMATION
  Report Type: 
  Country: None (occurrence: None)
  Receive Date: 20040331
  Receipt Date: 20040311
  Transmission Date: 20041129
  Serious: Yes (Other)
  Sender: FDA-Public Use
  Company Number: USA040259674

PATIENT
  Age: 79 Year
  Sex: Female

DRUGS (11)
  1. FORTEO [Suspect]
     Indication: OSTEOPOROSIS
     Dosage: 20 UG/1 DAY
  2. CALCIUM AND VITAMIN D [Concomitant]
  3. ZANTAC [Concomitant]
  4. RITALIN [Concomitant]
  5. LOPRESSOR [Concomitant]
  6. MEGACE [Concomitant]
  7. TESSALON [Concomitant]
  8. DITROPAN XL [Concomitant]
  9. ESTRACE [Concomitant]
  10. PREDNISONE [Concomitant]
  11. MIRALAX [Concomitant]

REACTIONS (3)
  - BLOOD ALBUMIN DECREASED [None]
  - BLOOD CREATININE INCREASED [None]
  - HYPERCALCAEMIA [None]
